FAERS Safety Report 7820818-2 (Version None)
Quarter: 2011Q4

REPORT INFORMATION
  Report Type: 
  Country: None (occurrence: None)
  Receive Date: 20111018
  Receipt Date: 20111013
  Transmission Date: 20120403
  Serious: Yes (Hospitalization)
  Sender: FDA-Public Use
  Company Number: US-MERCK-1110USA01866

PATIENT
  Age: 46 Year
  Sex: Male

DRUGS (1)
  1. STROMECTOL [Suspect]
     Route: 048

REACTIONS (5)
  - INTENTION TREMOR [None]
  - DELIRIUM [None]
  - DELUSIONAL DISORDER, UNSPECIFIED TYPE [None]
  - SPEECH DISORDER [None]
  - ATAXIA [None]
